FAERS Safety Report 9812584 (Version 2)
Quarter: 2014Q1

REPORT INFORMATION
  Report Type: Spontaneous
  Country: CA (occurrence: CA)
  Receive Date: 20140113
  Receipt Date: 20140224
  Transmission Date: 20141002
  Serious: Yes (Other)
  Sender: FDA-Public Use
  Company Number: CA-AMGEN-CANSP2014001006

PATIENT
  Age: 62 Year
  Sex: Female
  Weight: 60 kg

DRUGS (9)
  1. VECTIBIX [Suspect]
     Indication: COLON CANCER METASTATIC
     Dosage: 378 UNK, 2 TIMES/WK
     Route: 042
  2. SERTRALINE [Concomitant]
     Dosage: 25 MG, QD
     Route: 048
  3. ATIVAN [Concomitant]
     Dosage: 0.5 MG, TID
  4. ATIVAN [Concomitant]
     Dosage: 1 MG, UNK
  5. IMOVANE [Concomitant]
     Dosage: 15 MG, QHS
  6. PANTOLOC                           /01263204/ [Concomitant]
     Dosage: 40 MG, Q DAY
     Route: 048
  7. VIT D [Concomitant]
     Dosage: 1200 IU, DAILY
  8. VITAMIN E [Concomitant]
     Dosage: 400 MG, DAILY
  9. DOXYCYCLINE [Concomitant]
     Dosage: 100 MG, QD
     Route: 048

REACTIONS (4)
  - Grand mal convulsion [Recovered/Resolved]
  - Blood phosphorus decreased [Unknown]
  - Pruritus [Unknown]
  - Atrophy [Unknown]
